FAERS Safety Report 5675835-8 (Version None)
Quarter: 2008Q1

REPORT INFORMATION
  Report Type: 
  Country: None (occurrence: None)
  Receive Date: 20080318
  Receipt Date: 20080303
  Transmission Date: 20080703
  Serious: Yes (Hospitalization)
  Sender: FDA-Public Use
  Company Number: L08-USA-01003-01

PATIENT
  Age: 44 Year
  Sex: Female

DRUGS (9)
  1. CITALOPRAM [Suspect]
     Dosage: 50 MG QD
  2. PREDNISONE TAB [Suspect]
     Dosage: 50 MG QD
  3. OXYCODONE HCL [Suspect]
  4. LORAZEPAM [Suspect]
  5. ZINC [Suspect]
  6. ALENDRONATE(ALENDRONATE SODIUM) [Suspect]
  7. GABAPENTIN [Suspect]
  8. ERYTHROMYCIN [Suspect]
  9. MUPIROCIN [Suspect]

REACTIONS (24)
  - DERMATITIS EXFOLIATIVE [None]
  - ERYTHEMA [None]
  - ERYTHEMA ANNULARE [None]
  - EYE SWELLING [None]
  - GRAFT VERSUS HOST DISEASE [None]
  - HYPERKERATOSIS [None]
  - HYPERPLASIA [None]
  - INFLAMMATION [None]
  - MYCOSIS FUNGOIDES [None]
  - NEOPLASM [None]
  - OCULAR HYPERAEMIA [None]
  - OEDEMA PERIPHERAL [None]
  - PARAKERATOSIS [None]
  - PARANEOPLASTIC SYNDROME [None]
  - PSORIASIS [None]
  - PURULENT DISCHARGE [None]
  - RASH ERYTHEMATOUS [None]
  - RASH GENERALISED [None]
  - RASH PUSTULAR [None]
  - SKIN PLAQUE [None]
  - SKIN ULCER [None]
  - STEM CELL TRANSPLANT [None]
  - T-CELL LYMPHOMA [None]
  - WOUND SECRETION [None]
